FAERS Safety Report 10775602 (Version 1)
Quarter: 2015Q1

REPORT INFORMATION
  Report Type: Spontaneous
  Country: US (occurrence: US)
  Receive Date: 20150209
  Receipt Date: 20150209
  Transmission Date: 20150721
  Serious: Yes (Hospitalization)
  Sender: FDA-Public Use
  Company Number: US-CELGENE-163-21880-14023603

PATIENT
  Age: 87 Year
  Sex: Male

DRUGS (4)
  1. DECADRON [Concomitant]
     Active Substance: DEXAMETHASONE
     Indication: PLASMA CELL MYELOMA
     Route: 065
     Dates: start: 20131212
  2. DECADRON [Concomitant]
     Active Substance: DEXAMETHASONE
     Indication: MYASTHENIA GRAVIS
  3. REVLIMID [Suspect]
     Active Substance: LENALIDOMIDE
     Route: 048
     Dates: start: 20140404
  4. REVLIMID [Suspect]
     Active Substance: LENALIDOMIDE
     Indication: PARAPROTEINAEMIA
     Route: 048
     Dates: start: 20130512, end: 20140131

REACTIONS (4)
  - Dehydration [Recovered/Resolved]
  - Diarrhoea [Recovered/Resolved]
  - Decreased appetite [Unknown]
  - Malnutrition [Unknown]

NARRATIVE: CASE EVENT DATE: 20140203
